FAERS Safety Report 5499780-6 (Version None)
Quarter: 2007Q4

REPORT INFORMATION
  Report Type: 
  Country: None (occurrence: None)
  Receive Date: 20071026
  Receipt Date: 20071017
  Transmission Date: 20080405
  Serious: Yes (Hospitalization, Other)
  Sender: FDA-Public Use
  Company Number: US-PFIZER INC-2007045238

PATIENT
  Age: 27 Year
  Sex: Female
  Weight: 61.9 kg

DRUGS (3)
  1. SUTENT [Suspect]
     Indication: ADRENAL CARCINOMA
     Route: 048
  2. BEVACIZUMAB [Suspect]
     Indication: ADRENAL CARCINOMA
     Route: 042
  3. LISINOPRIL [Concomitant]

REACTIONS (2)
  - COLITIS [None]
  - HEADACHE [None]
